FAERS Safety Report 7418184-X (Version None)
Quarter: 2011Q2

REPORT INFORMATION
  Report Type: 
  Country: None (occurrence: None)
  Receive Date: 20110415
  Receipt Date: 20110401
  Transmission Date: 20111010
  Serious: Yes (Other)
  Sender: FDA-Public Use
  Company Number: US-CELGENEUS-163-20785-11040220

PATIENT
  Sex: Male

DRUGS (7)
  1. THALOMID [Suspect]
     Dosage: 50 MILLIGRAM
     Route: 048
     Dates: start: 20100901, end: 20101101
  2. TIAZAC [Concomitant]
     Route: 065
  3. THALOMID [Suspect]
     Indication: MULTIPLE MYELOMA
     Dosage: 100 MILLIGRAM
     Route: 048
     Dates: start: 20100502
  4. LISINOPRIL [Concomitant]
     Route: 065
  5. REVLIMID [Concomitant]
     Dosage: 10 MILLIGRAM
     Route: 048
     Dates: start: 20110405
  6. HYDROCHLOROTHIAZIDE [Concomitant]
     Route: 065
  7. REVLIMID [Concomitant]
     Indication: MULTIPLE MYELOMA
     Dosage: 10 MILLIGRAM
     Route: 048
     Dates: start: 20110202, end: 20110223

REACTIONS (1)
  - PROSTATE CANCER [None]
